FAERS Safety Report 7815378-6 (Version None)
Quarter: 2011Q4

REPORT INFORMATION
  Report Type: 
  Country: None (occurrence: None)
  Receive Date: 20111014
  Receipt Date: 20111007
  Transmission Date: 20120403
  Serious: Yes (Other)
  Sender: FDA-Public Use
  Company Number: US-BAYER-2011-096330

PATIENT
  Age: 69 Year
  Sex: Female

DRUGS (2)
  1. AVELOX [Suspect]
     Indication: ASTHMA
     Dosage: 250 MG, UNK
     Route: 042
     Dates: start: 20081030, end: 20081102
  2. AVELOX [Suspect]
     Indication: BRONCHITIS
     Dosage: 400 MG, UNK
     Route: 048
     Dates: start: 20081201

REACTIONS (3)
  - TENDONITIS [None]
  - TENDON RUPTURE [None]
  - TENDON PAIN [None]
